FAERS Safety Report 9280261 (Version 1)
Quarter: 2012Q4

REPORT INFORMATION
  Report Type: 
  Country: US (occurrence: None)
  Receive Date: 20120919
  Receipt Date: 20120919
  Transmission Date: 20130627
  Serious: Yes (Death, Hospitalization, Other)
  Sender: FDA-Public Use
  Company Number: 2012MA010951

PATIENT
  Age: 40 Year
  Sex: Female

DRUGS (5)
  1. MIRTAZAPINE [Suspect]
     Route: 048
  2. VENLAFAXINE (VENLAFAXINE) [Suspect]
     Route: 048
  3. LAMOTRIGINE [Suspect]
     Route: 048
  4. QUETIAPINE (QUETIAPINE) (QUETIAPINE) [Suspect]
     Route: 048
  5. FERROUS SULFATE [Concomitant]

REACTIONS (28)
  - Agranulocytosis [None]
  - Cellulitis orbital [None]
  - Pharyngitis [None]
  - Oral candidiasis [None]
  - Productive cough [None]
  - Febrile neutropenia [None]
  - Convulsion [None]
  - Septic shock [None]
  - Cardiac arrest [None]
  - Unresponsive to stimuli [None]
  - Hypotension [None]
  - Blood potassium decreased [None]
  - Lung consolidation [None]
  - Pulmonary mass [None]
  - Lung infection [None]
  - Enterococcus test positive [None]
  - Aspergillus test positive [None]
  - Candida test positive [None]
  - Renal failure acute [None]
  - Haemodialysis [None]
  - Alanine aminotransferase increased [None]
  - Aspartate aminotransferase increased [None]
  - Blood bilirubin increased [None]
  - Bilirubin conjugated increased [None]
  - Platelet count decreased [None]
  - Blood pH decreased [None]
  - Blood bicarbonate decreased [None]
  - Condition aggravated [None]
